FAERS Safety Report 9995098 (Version 1)
Quarter: 2014Q1

REPORT INFORMATION
  Report Type: Spontaneous
  Country: US (occurrence: None)
  Receive Date: 20140307
  Receipt Date: 20140307
  Transmission Date: 20141002
  Serious: No
  Sender: FDA-Public Use
  Company Number: None

PATIENT
  Age: 77 Year
  Sex: Female
  Weight: 54.43 kg

DRUGS (7)
  1. MULTAQ [Suspect]
     Indication: ATRIAL FIBRILLATION
     Route: 048
     Dates: end: 20140114
  2. BUMEX [Concomitant]
  3. WARFARIN [Concomitant]
  4. THYROID [Concomitant]
  5. DEFIBNITATOR [Concomitant]
  6. VIT 12 B [Concomitant]
  7. VIT D3 [Concomitant]

REACTIONS (4)
  - Eye pruritus [None]
  - Eye pain [None]
  - Photophobia [None]
  - Urinary retention [None]
